FAERS Safety Report 18239905 (Version 1)
Quarter: 2020Q3

REPORT INFORMATION
  Report Type: Other
  Country: US (occurrence: US)
  Receive Date: 20200908
  Receipt Date: 20200908
  Transmission Date: 20201103
  Serious: Yes (Hospitalization)
  Sender: FDA-Public Use
  Company Number: US-VGYAAN PHARMACEUTICALS LLC-2089468

PATIENT
  Age: 17 Year
  Sex: Male

DRUGS (2)
  1. FLECAINIDE [Suspect]
     Active Substance: FLECAINIDE
     Route: 065
  2. NADOLOL. [Suspect]
     Active Substance: NADOLOL
     Indication: VENTRICULAR TACHYCARDIA
     Route: 065

REACTIONS (7)
  - Bradycardia [Unknown]
  - Ventricular tachycardia [Not Recovered/Not Resolved]
  - Drug ineffective [Unknown]
  - Hypotension [Unknown]
  - Sinus bradycardia [Unknown]
  - Dizziness [Unknown]
  - Atrial fibrillation [Not Recovered/Not Resolved]
